FAERS Safety Report 8001562-8 (Version None)
Quarter: 2011Q4

REPORT INFORMATION
  Report Type: 
  Country: None (occurrence: None)
  Receive Date: 20111222
  Receipt Date: 20111215
  Transmission Date: 20120403
  Serious: Yes (Hospitalization)
  Sender: FDA-Public Use
  Company Number: FR-PFIZER INC-2011305542

PATIENT
  Age: 11 Year
  Sex: Female
  Weight: 35.65 kg

DRUGS (1)
  1. PEDIATRIC ADVIL [Suspect]
     Indication: PYREXIA
     Dosage: 1 DF, 6X/DAY
     Route: 048
     Dates: start: 20111114, end: 20111116

REACTIONS (5)
  - POLYDIPSIA [None]
  - POLLAKIURIA [None]
  - BACK PAIN [None]
  - TUBULOINTERSTITIAL NEPHRITIS [None]
  - VOMITING [None]
